FAERS Safety Report 4612955-0 (Version None)
Quarter: 2005Q1

REPORT INFORMATION
  Report Type: 
  Country: None (occurrence: None)
  Receive Date: 20050318
  Receipt Date: 20050308
  Transmission Date: 20050727
  Serious: Yes (Hospitalization)
  Sender: FDA-Public Use
  Company Number: US-ROCHE-398164

PATIENT
  Sex: Male

DRUGS (2)
  1. FUZEON [Suspect]
     Indication: DRUG USE FOR UNKNOWN INDICATION
     Dosage: ROUTE OF ADMINISTRATION REPORTED AS INJ.
     Route: 050
     Dates: start: 20030414
  2. FUZEON [Suspect]
     Dosage: ROUTE OF ADMINISTRATION REPORTED AS INJ.
     Route: 050

REACTIONS (3)
  - LABYRINTHITIS [None]
  - PANCREATITIS [None]
  - VIRAL INFECTION [None]
